FAERS Safety Report 5157883-X (Version None)
Quarter: 2006Q4

REPORT INFORMATION
  Report Type: 
  Country: None (occurrence: None)
  Receive Date: 20061120
  Receipt Date: 20061120
  Transmission Date: 20070319
  Serious: Yes (Hospitalization)
  Sender: FDA-Public Use
  Company Number: None

PATIENT
  Age: 57 Year
  Sex: Male
  Weight: 71.6683 kg

DRUGS (14)
  1. FLUOROURACIL [Suspect]
     Indication: RECTAL CANCER
     Dosage: 2993.7 MG CONT INFUSION 336 IV
     Route: 042
     Dates: start: 20061012, end: 20061019
  2. ALBUTEROL SULFATE AND IPRATROPIUM BROMIDE [Concomitant]
  3. ASPIRIN [Concomitant]
  4. ATENOLOL [Concomitant]
  5. CALCIUM ACETATE [Concomitant]
  6. DIPEHN ELIX [Concomitant]
  7. FELOIDIPINE [Concomitant]
  8. LOPERAMIDE [Concomitant]
  9. NTG SL [Concomitant]
  10. OXYOCODONE [Concomitant]
  11. PROCHLORPERAZINE [Concomitant]
  12. RANITIDINE [Concomitant]
  13. SIMVASTATIN [Concomitant]
  14. SODIUM BICARB [Concomitant]

REACTIONS (3)
  - NAUSEA [None]
  - ORAL INTAKE REDUCED [None]
  - VOMITING [None]
